FAERS Safety Report 7054628-3 (Version None)
Quarter: 2010Q4

REPORT INFORMATION
  Report Type: 
  Country: None (occurrence: None)
  Receive Date: 20101020
  Receipt Date: 20101013
  Transmission Date: 20110411
  Serious: Yes (Hospitalization, Other)
  Sender: FDA-Public Use
  Company Number: US-PFIZER INC-2010130816

PATIENT
  Sex: Male
  Weight: 117 kg

DRUGS (2)
  1. TIKOSYN [Suspect]
     Indication: ATRIAL FIBRILLATION
     Dosage: 0.5 MG, 2X/DAY
     Route: 048
     Dates: start: 20090101, end: 20100601
  2. TIKOSYN [Suspect]
     Dosage: 0.5 MG, 1X/DAY
     Route: 048
     Dates: start: 20100801

REACTIONS (4)
  - ANXIETY [None]
  - ATRIAL FIBRILLATION [None]
  - ELECTROCARDIOGRAM QT PROLONGED [None]
  - FATIGUE [None]
